FAERS Safety Report 6405038-0 (Version None)
Quarter: 2009Q4

REPORT INFORMATION
  Report Type: 
  Country: None (occurrence: None)
  Receive Date: 20091019
  Receipt Date: 20091008
  Transmission Date: 20100525
  Serious: Yes (Hospitalization)
  Sender: FDA-Public Use
  Company Number: GB-PFIZER INC-2009280874

PATIENT

DRUGS (1)
  1. SALAZOPYRIN [Suspect]
     Indication: ARTHRITIS
     Dosage: UNK

REACTIONS (2)
  - BLOOD TEST ABNORMAL [None]
  - LOSS OF CONSCIOUSNESS [None]
